FAERS Safety Report 4272566-6 (Version None)
Quarter: 2004Q1

REPORT INFORMATION
  Report Type: 
  Country: None (occurrence: None)
  Receive Date: 20040114
  Receipt Date: 20040114
  Transmission Date: 20041129
  Serious: Yes (Other)
  Sender: FDA-Public Use
  Company Number: None

PATIENT
  Age: 70 Year
  Sex: Male

DRUGS (2)
  1. REMICADE [Suspect]
     Indication: RHEUMATOID ARTHRITIS
     Dosage: 300 MG IV Q 5 WK
     Route: 042
     Dates: start: 20000301
  2. METHOTREXATE [Suspect]
     Indication: RHEUMATOID ARTHRITIS
     Dosage: 10 MG PO WEEKLY
     Route: 048
     Dates: start: 19991201

REACTIONS (2)
  - COCCIDIOIDOMYCOSIS [None]
  - LYMPHADENOPATHY [None]
